FAERS Safety Report 25012534 (Version 1)
Quarter: 2025Q1

REPORT INFORMATION
  Report Type: Report from Study
  Country: KR (occurrence: KR)
  Receive Date: 20250226
  Receipt Date: 20250226
  Transmission Date: 20250408
  Serious: Yes (Other)
  Sender: TAKEDA
  Company Number: KR-TAKEDA-2025TUS018028

PATIENT
  Age: 55 Year
  Sex: Male
  Weight: 56.3 kg

DRUGS (28)
  1. MARIBAVIR [Suspect]
     Active Substance: MARIBAVIR
     Indication: Cytomegalovirus infection
     Dosage: 400 MILLIGRAM, BID
     Dates: start: 20241203, end: 20250108
  2. Vacrax [Concomitant]
     Indication: Viral infection
     Dosage: 200 MILLIGRAM, BID
     Dates: start: 20241226
  3. BEPOTEN [Concomitant]
     Indication: Graft versus host disease in skin
     Dosage: 10 MILLIGRAM, BID
     Dates: start: 20241118, end: 20241202
  4. RUXOLITINIB [Concomitant]
     Active Substance: RUXOLITINIB
     Indication: Acute myeloid leukaemia
     Dosage: 10 MILLIGRAM, BID
     Dates: start: 20241120
  5. PLAVIX [Concomitant]
     Active Substance: CLOPIDOGREL BISULFATE
     Indication: Cerebral artery occlusion
     Dosage: 75 MILLIGRAM, QD
     Dates: start: 20241216
  6. EZETIMIBE [Concomitant]
     Active Substance: EZETIMIBE
     Indication: Dyslipidaemia
     Dosage: UNK UNK, QD
     Dates: start: 20241031
  7. FOSCAVIR [Concomitant]
     Active Substance: FOSCARNET SODIUM
     Dosage: 3600 MILLIGRAM, BID
     Dates: start: 20241120, end: 20241203
  8. PLUNAZOLE [Concomitant]
     Indication: Fungal infection
     Dosage: 100 MILLIGRAM, QD
     Dates: start: 20241217
  9. LASIX [Concomitant]
     Active Substance: FUROSEMIDE
     Indication: Pleural effusion
     Dosage: 20 MILLIGRAM, QD
     Dates: start: 20241124, end: 20241209
  10. BECLOMETHASONE DIPROPIONATE [Concomitant]
     Active Substance: BECLOMETHASONE DIPROPIONATE
     Indication: Graft versus host disease in gastrointestinal tract
     Dosage: 5 MILLIGRAM, BID
     Dates: start: 20241114, end: 20250101
  11. METHYLPREDNISOLONE [Concomitant]
     Active Substance: METHYLPREDNISOLONE
     Indication: Graft versus host disease in skin
     Dosage: 63.5 MILLIGRAM, QD
     Dates: start: 20241111, end: 20241216
  12. SOLONDO [Concomitant]
     Indication: Graft versus host disease in skin
     Dosage: 10 MILLIGRAM, TID
     Dates: start: 20241217, end: 20250101
  13. SOLONDO [Concomitant]
     Dosage: 10 MILLIGRAM, TID
     Dates: start: 20250102
  14. TACROLIMUS [Concomitant]
     Active Substance: TACROLIMUS
     Indication: Graft versus host disease
     Dosage: 0.5 MILLIGRAM, QD
     Dates: start: 20241115, end: 20241216
  15. TACROLIMUS [Concomitant]
     Active Substance: TACROLIMUS
     Dosage: 1 MILLIGRAM, QD
     Dates: start: 20241217
  16. Samnam loperamide [Concomitant]
     Indication: Graft versus host disease in gastrointestinal tract
     Dosage: 4 MILLIGRAM, BID
     Dates: start: 20241115, end: 20241217
  17. ORNITHINE ASPARTATE [Concomitant]
     Active Substance: ORNITHINE ASPARTATE
     Indication: Liver disorder
     Dosage: 20 GRAM, QD
     Dates: start: 20241104, end: 20241218
  18. NOXAFIL [Concomitant]
     Active Substance: POSACONAZOLE
     Indication: Fungal infection
     Dosage: 400 MILLIGRAM, QD
     Dates: start: 20241111, end: 20241216
  19. FOTAGEL [Concomitant]
     Indication: Graft versus host disease in gastrointestinal tract
     Dosage: 20 MILLILITER, TID
     Dates: start: 20241113, end: 20241208
  20. URSODIOL [Concomitant]
     Active Substance: URSODIOL
     Indication: Liver disorder
     Dosage: 200 MILLIGRAM, TID
     Dates: start: 20241104, end: 20241202
  21. URSODIOL [Concomitant]
     Active Substance: URSODIOL
     Dosage: 100 MILLIGRAM, TID
     Dates: start: 20241203, end: 20241208
  22. Godex [Concomitant]
     Indication: Liver disorder
     Dosage: UNK UNK, TID
     Dates: start: 20241104, end: 20241202
  23. SULFAMETHOXAZOLE\TRIMETHOPRIM [Concomitant]
     Active Substance: SULFAMETHOXAZOLE\TRIMETHOPRIM
     Indication: Infection
     Dosage: UNK UNK, QD
     Dates: start: 20241111
  24. Almagel [Concomitant]
     Indication: Dyspepsia
     Dosage: 500 MILLIGRAM, TID
     Dates: start: 20241217, end: 20250101
  25. CALCIUM GLUCONATE [Concomitant]
     Active Substance: CALCIUM GLUCONATE
     Indication: Hypocalcaemia
     Dosage: 2 GRAM, QD
     Dates: start: 20241028, end: 20241206
  26. Fexuclue [Concomitant]
     Indication: Gastrooesophageal reflux disease
     Dosage: 40 MILLIGRAM, QD
     Dates: start: 20250102
  27. Freepan [Concomitant]
     Indication: Graft versus host disease in gastrointestinal tract
     Dosage: 40 MILLIGRAM, QD
     Dates: start: 20241212, end: 20241216
  28. PANTOPRAZOLE SODIUM [Concomitant]
     Active Substance: PANTOPRAZOLE SODIUM
     Indication: Gastrointestinal disorder
     Dosage: 40 MILLIGRAM, QD
     Dates: start: 20241029, end: 20241216

REACTIONS (3)
  - Groin abscess [Recovered/Resolved]
  - Nausea [Recovered/Resolved]
  - Vomiting [Recovered/Resolved]

NARRATIVE: CASE EVENT DATE: 20241209
